FAERS Safety Report 5318412-0 (Version None)
Quarter: 2007Q2

REPORT INFORMATION
  Report Type: 
  Country: None (occurrence: None)
  Receive Date: 20070501
  Receipt Date: 20070416
  Transmission Date: 20071010
  Serious: Yes (Other)
  Sender: FDA-Public Use
  Company Number: S07-USA-00985-01

PATIENT
  Age: 51 Year
  Sex: Male

DRUGS (11)
  1. LEXAPRO [Suspect]
     Indication: DEPRESSION
     Dosage: 10 MG QD PO
     Route: 048
     Dates: start: 20070101, end: 20070301
  2. LEXAPRO [Suspect]
     Indication: DEPRESSION
     Dosage: 5 MG QD PO
     Route: 048
     Dates: start: 20061201, end: 20070101
  3. LASIX [Suspect]
     Dosage: 20 MG QD
  4. LASIX [Suspect]
  5. SPIRONOLACTONE [Concomitant]
  6. QUININE SULFATE [Concomitant]
  7. NEOMYCIN [Concomitant]
  8. PREVACID [Concomitant]
  9. MAGNESIUM SULFATE [Concomitant]
  10. LACTULOSE [Concomitant]
  11. OXAZEPAM [Concomitant]

REACTIONS (5)
  - BLOOD SODIUM DECREASED [None]
  - HEPATIC CIRRHOSIS [None]
  - HEPATIC FAILURE [None]
  - HYPONATRAEMIA [None]
  - TREMOR [None]
